FAERS Safety Report 4488981-1 (Version None)
Quarter: 2004Q4

REPORT INFORMATION
  Report Type: 
  Country: None (occurrence: None)
  Receive Date: 20041027
  Receipt Date: 20041012
  Transmission Date: 20050328
  Serious: Yes (Death)
  Sender: FDA-Public Use
  Company Number: 2004S1003062

PATIENT
  Age: 69 Year
  Sex: Male

DRUGS (4)
  1. CLOZAPINE [Suspect]
     Indication: ABNORMAL BEHAVIOUR
     Dosage: 50MG BID, THEN 75MG QD, ORAL
     Route: 048
     Dates: start: 20040701, end: 20041006
  2. MORPHINE SULFATE [Concomitant]
  3. FAMOTIDINE [Concomitant]
  4. METOPROLOL SUCCINATE [Concomitant]

REACTIONS (1)
  - PNEUMONIA [None]
